FAERS Safety Report 9880005 (Version 1)
Quarter: 2014Q1

REPORT INFORMATION
  Report Type: Report from Study
  Country: US (occurrence: US)
  Receive Date: 20140207
  Receipt Date: 20140207
  Transmission Date: 20141002
  Serious: Yes (Death)
  Sender: FDA-Public Use
  Company Number: US-ROCHE-1319268

PATIENT
  Sex: Female

DRUGS (7)
  1. AVASTIN [Suspect]
     Indication: BREAST CANCER
     Route: 065
     Dates: start: 20111025
  2. ALOXI [Concomitant]
     Route: 065
  3. DECADRON [Concomitant]
     Route: 065
  4. EMEND [Concomitant]
     Route: 048
  5. ABRAXANE [Concomitant]
     Route: 065
  6. CARBOPLATIN [Concomitant]
     Route: 065
  7. XGEVA [Concomitant]

REACTIONS (2)
  - Death [Fatal]
  - Disease progression [Unknown]
